FAERS Safety Report 8208748 (Version 2)
Quarter: 2013Q2

REPORT INFORMATION
  Report Type: Spontaneous
  Country: US (occurrence: None)
  Receive Date: 20110915
  Receipt Date: 20121016
  Transmission Date: 20140414
  Serious: Yes (Hospitalization)
  Sender: FDA-Public Use
  Company Number: 2011029199

PATIENT
  Age: 61 Year
  Sex: Female

DRUGS (1)
  1. PRIVIGEN [Suspect]
     Indication: IMMUNODEFICIENCY COMMON VARIABLE
     Dosage: 36 G, EVERY 2-3 WEEKS INTRAVENOUS (NOT OTHERWISE SPECIFIED), INTRAVENOUS (NOT OTHERWISE SPECIFIED)
     Dates: start: 2010

REACTIONS (4)
  - ASPARTATE AMINOTRANSFERASE INCREASED [None]
  - ALANINE AMINOTRANSFERASE INCREASED [None]
  - ABDOMINAL PAIN [None]
  - Liver function test abnormal [None]
